FAERS Safety Report 6250339-2 (Version None)
Quarter: 2009Q2

REPORT INFORMATION
  Report Type: 
  Country: None (occurrence: None)
  Receive Date: 20090626
  Receipt Date: 20090626
  Transmission Date: 20091009
  Serious: Yes (Other)
  Sender: FDA-Public Use
  Company Number: None

PATIENT
  Age: 63 Year
  Sex: Male
  Weight: 131.5431 kg

DRUGS (2)
  1. ZICAM [Suspect]
     Indication: NASAL CONGESTION
     Dosage: SPRAY OF GEL 1 EVERY 24 HRS NASAL
     Route: 045
     Dates: start: 20080301, end: 20080423
  2. ZICAM [Suspect]
     Indication: RHINORRHOEA
     Dosage: SPRAY OF GEL 1 EVERY 24 HRS NASAL
     Route: 045
     Dates: start: 20080301, end: 20080423

REACTIONS (4)
  - COUGH [None]
  - NASAL INFLAMMATION [None]
  - SCAR [None]
  - THROAT IRRITATION [None]
